FAERS Safety Report 7858492-1 (Version None)
Quarter: 2011Q4

REPORT INFORMATION
  Report Type: 
  Country: None (occurrence: None)
  Receive Date: 20111027
  Receipt Date: 20111018
  Transmission Date: 20120403
  Serious: Yes (Hospitalization, Other)
  Sender: FDA-Public Use
  Company Number: GB-JNJFOC-20111009554

PATIENT
  Age: 71 Year
  Sex: Male
  Weight: 62.5 kg

DRUGS (11)
  1. ESOMEPRAZOLE SODIUM [Concomitant]
     Route: 065
  2. QUININE SULFATE [Concomitant]
     Route: 065
  3. RAMIPRIL [Concomitant]
     Route: 065
  4. GALANTAMINE HYDROBROMIDE [Suspect]
     Indication: VASCULAR DEMENTIA
     Route: 048
     Dates: start: 20110412, end: 20110906
  5. QUININE SULFATE [Concomitant]
     Route: 065
  6. CITALOPRAM HYDROBROMIDE [Concomitant]
     Route: 065
  7. CLOPIDOGREL [Concomitant]
     Route: 065
  8. DIPYRIDAMOLE [Concomitant]
     Route: 065
  9. SIMVASTATIN [Concomitant]
     Route: 065
  10. ASPIRIN [Concomitant]
     Route: 065
  11. COLPERMIN [Concomitant]
     Route: 065

REACTIONS (5)
  - STATUS EPILEPTICUS [None]
  - SYNCOPE [None]
  - HYPOTHERMIA [None]
  - CONVULSION [None]
  - WHITE BLOOD CELL COUNT ABNORMAL [None]
